FAERS Safety Report 14051048 (Version 1)
Quarter: 2017Q4

REPORT INFORMATION
  Report Type: Spontaneous
  Country: US (occurrence: US)
  Receive Date: 20171005
  Receipt Date: 20171005
  Transmission Date: 20180321
  Serious: No
  Sender: FDA-Public Use
  Company Number: US-BAYER-2017-177965

PATIENT
  Age: 68 Year
  Sex: Female

DRUGS (1)
  1. GADAVIST [Suspect]
     Active Substance: GADOBUTROL
     Indication: SCAN WITH CONTRAST
     Dosage: UNK, ONCE
     Dates: start: 20170911, end: 20170911

REACTIONS (5)
  - Erythema [Recovered/Resolved with Sequelae]
  - Tension [Recovering/Resolving]
  - Hypoaesthesia [Recovered/Resolved]
  - Swollen tongue [Recovered/Resolved with Sequelae]
  - Paraesthesia [Recovered/Resolved]

NARRATIVE: CASE EVENT DATE: 20170911
